FAERS Safety Report 6212743-8 (Version None)
Quarter: 2009Q2

REPORT INFORMATION
  Report Type: 
  Country: None (occurrence: None)
  Receive Date: 20090603
  Receipt Date: 20090526
  Transmission Date: 20091009
  Serious: Yes (Other)
  Sender: FDA-Public Use
  Company Number: PHHY2009DE20544

PATIENT
  Sex: Female

DRUGS (1)
  1. ZOMETA [Suspect]
     Dosage: UNK
     Route: 042

REACTIONS (4)
  - DEBRIDEMENT [None]
  - JAW OPERATION [None]
  - OSTEONECROSIS [None]
  - WOUND CLOSURE [None]
